FAERS Safety Report 7536375-4 (Version None)
Quarter: 2011Q2

REPORT INFORMATION
  Report Type: 
  Country: None (occurrence: None)
  Receive Date: 20110608
  Receipt Date: 20110608
  Transmission Date: 20111010
  Serious: Yes (Hospitalization)
  Sender: FDA-Public Use
  Company Number: None

PATIENT
  Age: 47 Year
  Sex: Male

DRUGS (2)
  1. CELEBREX [Suspect]
     Indication: DENTAL OPERATION
     Dosage: 200MG QDAY PO UNKNOWN DATE
     Route: 048
  2. CELEBREX [Suspect]
     Indication: PROCEDURAL PAIN
     Dosage: 200MG QDAY PO UNKNOWN DATE
     Route: 048

REACTIONS (6)
  - SWELLING FACE [None]
  - SWOLLEN TONGUE [None]
  - DYSPNOEA [None]
  - TOOTH ABSCESS [None]
  - ANAPHYLACTIC REACTION [None]
  - CELLULITIS [None]
